FAERS Safety Report 10223107 (Version 1)
Quarter: 2014Q2

REPORT INFORMATION
  Report Type: Spontaneous
  Country: KR (occurrence: None)
  Receive Date: 20140605
  Receipt Date: 20140605
  Transmission Date: 20141212
  Serious: Yes (Hospitalization, Other)
  Sender: FDA-Public Use
  Company Number: NSR_01562_2014

PATIENT
  Age: 45 Year
  Sex: Male

DRUGS (1)
  1. ALLOPURINOL (ALLOPURINOL) [Suspect]
     Indication: HYPERURICAEMIA
     Dosage: DF

REACTIONS (3)
  - Tubulointerstitial nephritis [None]
  - Haemodialysis [None]
  - Drug reaction with eosinophilia and systemic symptoms [None]
